FAERS Safety Report 21266125 (Version 1)
Quarter: 2022Q3

REPORT INFORMATION
  Report Type: Spontaneous
  Country: US (occurrence: US)
  Receive Date: 20220829
  Receipt Date: 20220829
  Transmission Date: 20221027
  Serious: Yes (Other)
  Sender: FDA-Public Use
  Company Number: US-Blueprint Medicines Corporation-369

PATIENT
  Sex: Female

DRUGS (1)
  1. AYVAKIT [Suspect]
     Active Substance: AVAPRITINIB
     Indication: Systemic mastocytosis
     Route: 048
     Dates: start: 20210910

REACTIONS (8)
  - Cellulitis [Unknown]
  - Hand-foot-and-mouth disease [Unknown]
  - Feeling abnormal [Unknown]
  - Nausea [Unknown]
  - Rash [Unknown]
  - Abdominal discomfort [Unknown]
  - Anaemia [Unknown]
  - Illness [Unknown]
